FAERS Safety Report 8312639 (Version 6)
Quarter: 2012Q4

REPORT INFORMATION
  Report Type: Report from Study
  Country: US (occurrence: US)
  Receive Date: 20111227
  Receipt Date: 20121121
  Transmission Date: 20130627
  Serious: Yes (Hospitalization, Other)
  Sender: FDA-Public Use
  Company Number: US-ASTRAZENECA-2011SE76791

PATIENT
  Sex: Female

DRUGS (34)
  1. AZD6140 [Suspect]
     Indication: CORONARY ARTERY DISEASE
     Route: 048
     Dates: start: 20110825, end: 20111101
  2. AZD6140 [Suspect]
     Indication: CORONARY ARTERY DISEASE
     Route: 048
     Dates: start: 20111117, end: 20111207
  3. AMILORIDE/HCTZ [Suspect]
     Indication: HYPERTENSION
     Dosage: 5/50 EVERY MORNING
     Route: 048
     Dates: end: 20111207
  4. LASIX [Suspect]
     Indication: HYPERTENSION
     Route: 048
     Dates: end: 20111207
  5. LASIX [Suspect]
     Indication: OEDEMA
     Route: 048
     Dates: end: 20111207
  6. LASIX [Suspect]
     Indication: HYPERTENSION
     Route: 048
     Dates: start: 20120119
  7. LASIX [Suspect]
     Indication: OEDEMA
     Route: 048
     Dates: start: 20120119
  8. ASA [Concomitant]
     Route: 048
     Dates: start: 20110824
  9. SIMVASTATIN [Concomitant]
     Indication: HYPERLIPIDAEMIA
     Route: 048
  10. FISH OIL [Concomitant]
     Indication: HYPERLIPIDAEMIA
     Route: 048
     Dates: end: 20111207
  11. JANUVIA [Concomitant]
     Indication: TYPE 2 DIABETES MELLITUS
     Route: 048
     Dates: end: 20111207
  12. METOPROLOL [Concomitant]
     Indication: ISCHAEMIC HEART DISEASE PROPHYLAXIS
     Route: 048
     Dates: end: 20111207
  13. PROMETHAZINE [Concomitant]
     Indication: NAUSEA
     Route: 048
  14. VESICARE [Concomitant]
     Indication: BLADDER DISORDER
     Route: 048
  15. MULTIPLE VITAMIN [Concomitant]
     Indication: VITAMIN SUPPLEMENTATION
     Route: 048
     Dates: end: 20111207
  16. AMLODIPINE [Concomitant]
     Indication: HYPERTENSION
     Route: 048
     Dates: end: 20110831
  17. AMLODIPINE [Concomitant]
     Indication: HYPERTENSION
     Route: 048
     Dates: start: 20110831, end: 20111207
  18. AMLODIPINE [Concomitant]
     Indication: HYPERTENSION
     Route: 048
     Dates: start: 20111213
  19. CRANBERRY FRUIT WITH VITAMIN C [Concomitant]
     Indication: VITAMIN SUPPLEMENTATION
     Route: 048
  20. VITAMIN D3 [Concomitant]
     Indication: VITAMIN SUPPLEMENTATION
     Route: 048
     Dates: end: 20111207
  21. ADVAIR [Concomitant]
     Indication: ASTHMA
     Dosage: 100/50 ONE PUFF TWICE DAILY
     Route: 055
  22. HYDROCODONE/APAP [Concomitant]
     Indication: PAIN
     Dosage: 5/500 AS NEEDED
     Route: 048
     Dates: end: 20111207
  23. CALCIUM+VITAMIN D [Concomitant]
     Indication: VITAMIN SUPPLEMENTATION
     Route: 048
     Dates: end: 20111207
  24. TYLENOL [Concomitant]
     Indication: PAIN
     Route: 048
  25. FLAX OIL [Concomitant]
     Indication: HYPERLIPIDAEMIA
     Route: 048
     Dates: end: 20111207
  26. LOSARTAN [Concomitant]
     Indication: HYPERTENSION
     Route: 048
     Dates: end: 20111207
  27. CINNAMON+CHROM [Concomitant]
     Indication: VITAMIN SUPPLEMENTATION
     Route: 048
     Dates: end: 20111207
  28. MECLIZINE [Concomitant]
     Indication: DIZZINESS
     Route: 048
  29. ENALAPRIL [Concomitant]
     Indication: HYPERTENSION
     Route: 048
     Dates: end: 20111207
  30. ALLOPURINOL [Concomitant]
     Indication: BLOOD URIC ACID INCREASED
     Route: 048
  31. VITAMIN B 12 [Concomitant]
     Indication: VITAMIN SUPPLEMENTATION
     Route: 048
  32. ACAI [Concomitant]
     Indication: VITAMIN SUPPLEMENTATION
     Route: 048
     Dates: end: 20111207
  33. IBUPROFEN [Concomitant]
     Indication: PAIN
     Dosage: AS NEEDED
     Route: 048
  34. VENTOLIN HFA [Concomitant]
     Indication: ASTHMA
     Route: 055

REACTIONS (3)
  - Atrioventricular block second degree [Recovered/Resolved]
  - Renal failure acute [Recovered/Resolved]
  - Hyponatraemia [Recovered/Resolved]
